FAERS Safety Report 9975693 (Version 1)
Quarter: 2014Q1

REPORT INFORMATION
  Report Type: Report from Study
  Country: US (occurrence: US)
  Receive Date: 20140306
  Receipt Date: 20140306
  Transmission Date: 20141002
  Serious: No
  Sender: FDA-Public Use
  Company Number: US-ABBVIE-13P-163-1160436-00

PATIENT
  Age: 72 Year
  Sex: Male

DRUGS (9)
  1. HUMIRA [Suspect]
     Indication: CROHN^S DISEASE
     Dates: start: 201212
  2. SERTRALINE [Concomitant]
     Indication: DEPRESSION
     Dosage: 25 MG DAILY
  3. LISINOPRIL [Concomitant]
     Indication: HYPERTENSION
  4. IMURAN [Concomitant]
     Indication: CROHN^S DISEASE
     Dosage: 150 MG DAILY
  5. OMEPRAZOLE [Concomitant]
     Indication: GASTRIC DISORDER
     Dosage: 2 CAPSULES DAILY
  6. IMODIUM [Concomitant]
     Indication: DIARRHOEA
     Dosage: 2 TABS IN AM AND 2 IN EVENING
  7. ASPIRIN [Concomitant]
     Indication: PRODUCT USED FOR UNKNOWN INDICATION
     Dosage: 81 MG DAILY
  8. CALCIUM [Concomitant]
     Indication: PRODUCT USED FOR UNKNOWN INDICATION
  9. FISH OIL [Concomitant]
     Indication: PRODUCT USED FOR UNKNOWN INDICATION

REACTIONS (2)
  - Tooth extraction [Not Recovered/Not Resolved]
  - Dizziness [Not Recovered/Not Resolved]
